FAERS Safety Report 14947750 (Version 1)
Quarter: 2018Q2

REPORT INFORMATION
  Report Type: Spontaneous
  Country: DK (occurrence: DK)
  Receive Date: 20180529
  Receipt Date: 20180529
  Transmission Date: 20180711
  Serious: Yes (Hospitalization)
  Sender: FDA-Public Use
  Company Number: DK-BAUSCH-BL-2018-014681

PATIENT
  Age: 77 Year
  Sex: Male
  Weight: 77 kg

DRUGS (24)
  1. TOILAX [Concomitant]
     Active Substance: BISACODYL
     Indication: PROPHYLAXIS
     Route: 048
     Dates: start: 20170328
  2. OXYNORM [Concomitant]
     Active Substance: OXYCODONE HYDROCHLORIDE
     Indication: PROPHYLAXIS
     Route: 048
     Dates: start: 20161212
  3. DESMOPRESSIN [Concomitant]
     Active Substance: DESMOPRESSIN
     Indication: BENIGN PROSTATIC HYPERPLASIA
     Dosage: DAILY
     Route: 048
     Dates: start: 20150408
  4. TAMSULOSIN [Concomitant]
     Active Substance: TAMSULOSIN
     Indication: BENIGN PROSTATIC HYPERPLASIA
     Dosage: DAILY
     Route: 048
     Dates: start: 2000
  5. OXYCODONE [Concomitant]
     Active Substance: OXYCODONE
     Indication: ARTHRALGIA
     Dosage: DAILY
     Route: 048
     Dates: start: 20160714
  6. ZONOCT [Concomitant]
     Active Substance: ZOLPIDEM TARTRATE
     Indication: PROPHYLAXIS
     Route: 048
     Dates: start: 20161129
  7. AVODART [Concomitant]
     Active Substance: DUTASTERIDE
     Indication: BENIGN PROSTATIC HYPERPLASIA
     Dosage: DAILY
     Route: 048
     Dates: start: 2015
  8. DARATUMUMAB [Concomitant]
     Active Substance: DARATUMUMAB
     Indication: PLASMA CELL MYELOMA
     Dosage: 1216 MILLIGRAM IN MONTH
     Route: 041
     Dates: start: 20151221, end: 20160128
  9. DARATUMUMAB [Concomitant]
     Active Substance: DARATUMUMAB
     Route: 041
     Dates: start: 20180320, end: 20180425
  10. DEXAMETHASONE. [Suspect]
     Active Substance: DEXAMETHASONE
     Indication: PLASMA CELL MYELOMA
     Dosage: DAILY
     Route: 048
     Dates: end: 20180313
  11. REVLIMID [Suspect]
     Active Substance: LENALIDOMIDE
     Indication: PLASMA CELL MYELOMA
     Dosage: DAILY
     Route: 048
     Dates: start: 20151221
  12. JERN C [Concomitant]
     Indication: PROPHYLAXIS
     Dosage: 1 DOSE, DOSE: 2 (UNSPECIFIED UNIT) DAILY.
     Route: 048
     Dates: start: 20161018
  13. LAXOBERAL [Concomitant]
     Active Substance: SODIUM PICOSULFATE
     Indication: CONSTIPATION
     Dosage: DOSE: 1 (UNSPECIFIED UNIT), DAILY
     Route: 048
     Dates: start: 20160322
  14. ULTIBRO [Concomitant]
     Active Substance: GLYCOPYRRONIUM\INDACATEROL
     Indication: PROPHYLAXIS
     Dosage: DAILY
     Route: 055
     Dates: start: 20170523
  15. OXYCODONE [Concomitant]
     Active Substance: OXYCODONE
     Route: 048
     Dates: start: 20161212
  16. CALCIUM [Concomitant]
     Active Substance: CALCIUM
     Indication: PROPHYLAXIS
     Dosage: DAILY
     Route: 048
     Dates: start: 20160322
  17. DEXAMETHASONE. [Suspect]
     Active Substance: DEXAMETHASONE
     Dosage: DAILY
     Route: 048
     Dates: start: 20151221, end: 20160214
  18. PARACETAMOL [Concomitant]
     Active Substance: ACETAMINOPHEN
     Indication: ARTHRALGIA
     Route: 048
     Dates: start: 20140901
  19. BUDESONID [Concomitant]
     Active Substance: BUDESONIDE
     Indication: ASTHMA
     Dosage: DAILY
     Route: 055
     Dates: start: 2000
  20. ASPIRIN. [Concomitant]
     Active Substance: ASPIRIN
     Indication: PROPHYLAXIS
     Dosage: DAILY
     Route: 048
     Dates: start: 20151230
  21. PANTOPRAZOLE [Concomitant]
     Active Substance: PANTOPRAZOLE
     Indication: PROPHYLAXIS
     Dosage: 40 MG IN 2 DAYS, (20 MG)
     Route: 048
     Dates: start: 20161005
  22. PRIVIGEN [Concomitant]
     Active Substance: HUMAN IMMUNOGLOBULIN G
     Indication: PROPHYLAXIS
     Route: 041
     Dates: start: 20160218
  23. TERBUTALINE [Concomitant]
     Active Substance: TERBUTALINE
     Indication: ASTHMA
     Route: 055
     Dates: start: 20100921
  24. REVLIMID [Suspect]
     Active Substance: LENALIDOMIDE
     Dosage: DAILY
     Route: 048
     Dates: start: 20180131, end: 20180312

REACTIONS (1)
  - Pyrexia [Recovered/Resolved]

NARRATIVE: CASE EVENT DATE: 20180408
